FAERS Safety Report 9196432 (Version 2)
Quarter: 2013Q2

REPORT INFORMATION
  Report Type: Report from Study
  Country: US (occurrence: US)
  Receive Date: 20130328
  Receipt Date: 20130408
  Transmission Date: 20140414
  Serious: Yes (Death, Hospitalization, Other)
  Sender: FDA-Public Use
  Company Number: US-BRISTOL-MYERS SQUIBB COMPANY-17318460

PATIENT
  Age: 79 Year
  Sex: Male

DRUGS (11)
  1. IPILIMUMAB [Suspect]
     Indication: INTRAOCULAR MELANOMA
     Dosage: LAST DOSE:27DEC2012
     Route: 042
     Dates: start: 20121206, end: 20121227
  2. HYDROMORPHONE [Concomitant]
  3. MARINOL [Concomitant]
  4. MVI [Concomitant]
  5. PROCHLORPERAZINE [Concomitant]
  6. NEXIUM [Concomitant]
  7. SYNTHROID [Concomitant]
  8. TAMSULOSIN [Concomitant]
  9. TRAMADOL [Concomitant]
  10. VITAMIN C [Concomitant]
  11. LUTEIN [Concomitant]

REACTIONS (5)
  - Malignant neoplasm progression [Fatal]
  - Diarrhoea [Recovered/Resolved]
  - Enterocolitis [Recovered/Resolved]
  - Hypotension [Unknown]
  - Renal failure acute [Unknown]
